FAERS Safety Report 7131959-X (Version None)
Quarter: 2010Q4

REPORT INFORMATION
  Report Type: 
  Country: None (occurrence: None)
  Receive Date: 20101202
  Receipt Date: 20101122
  Transmission Date: 20110411
  Serious: Yes (Other)
  Sender: FDA-Public Use
  Company Number: US-BAXTER-2010BH028632

PATIENT
  Age: 50 Year

DRUGS (5)
  1. GAMMAGARD LIQUID [Suspect]
     Indication: MYASTHENIA GRAVIS
     Route: 042
     Dates: start: 20101029, end: 20101029
  2. GAMMAGARD LIQUID [Suspect]
     Indication: OFF LABEL USE
     Route: 042
     Dates: start: 20101029, end: 20101029
  3. NORMAL HUMAN IMMUNOGLOBULIN [Concomitant]
  4. ALLOPURINOL [Concomitant]
     Indication: GOUT
  5. AVALIDE [Concomitant]
     Indication: HYPERTENSION

REACTIONS (5)
  - ANTI-HBC ANTIBODY POSITIVE [None]
  - ANTI-HBS ANTIBODY POSITIVE [None]
  - CHILLS [None]
  - HEPATIC ENZYME INCREASED [None]
  - MALAISE [None]
